FAERS Safety Report 19400008 (Version 4)
Quarter: 2023Q2

REPORT INFORMATION
  Report Type: Spontaneous
  Country: US (occurrence: US)
  Receive Date: 20210610
  Receipt Date: 20230604
  Transmission Date: 20230721
  Serious: Yes (Death, Hospitalization)
  Sender: FDA-Public Use
  Company Number: US-TEVA-2021-US-1920131

PATIENT
  Age: 21 Year
  Sex: Male

DRUGS (4)
  1. CISPLATIN [Suspect]
     Active Substance: CISPLATIN
     Indication: Testicular embryonal carcinoma stage II
     Dosage: RECEIVED 4 CYCLES AS A PART OF ETOPOSIDE AND CISPLATIN REGIMEN AND 1 CYCLE AS A PART OF ITP REGIMEN
     Route: 065
  2. ETOPOSIDE [Suspect]
     Active Substance: ETOPOSIDE
     Indication: Testicular embryonal carcinoma stage II
     Dosage: RECEIVED 4 CYCLES
     Route: 065
  3. PACLITAXEL [Suspect]
     Active Substance: PACLITAXEL
     Indication: Testicular embryonal carcinoma stage II
     Dosage: RECEIVED 1 CYCLE
     Route: 065
  4. IFOSFAMIDE [Suspect]
     Active Substance: IFOSFAMIDE
     Indication: Testicular embryonal carcinoma stage II
     Dosage: RECEIVED 1 CYCLE
     Route: 065

REACTIONS (1)
  - Acute lymphocytic leukaemia [Fatal]
